FAERS Safety Report 18602552 (Version 1)
Quarter: 2020Q4

REPORT INFORMATION
  Report Type: Spontaneous
  Country: US (occurrence: US)
  Receive Date: 20201210
  Receipt Date: 20201210
  Transmission Date: 20210114
  Serious: No
  Sender: FDA-Public Use
  Company Number: US-PERRIGO-20US013146

PATIENT
  Age: 66 Year
  Sex: Male

DRUGS (3)
  1. ALBUTEROL SULFATE. [Suspect]
     Active Substance: ALBUTEROL SULFATE
     Dosage: 90 TO 180 MCG, EVERY 6 HOURS, PRN
     Route: 055
     Dates: start: 20200910
  2. ALBUTEROL SULFATE. [Suspect]
     Active Substance: ALBUTEROL SULFATE
     Indication: PRODUCT USED FOR UNKNOWN INDICATION
     Dosage: 90 TO 180 MCG, EVERY 6 HOURS, PRN
     Route: 055
     Dates: start: 202003, end: 202004
  3. ALBUTEROL SULFATE. [Suspect]
     Active Substance: ALBUTEROL SULFATE
     Dosage: 90 TO 180 MCG, EVERY 6 HOURS, PRN
     Route: 055
     Dates: start: 202004, end: 20200910

REACTIONS (1)
  - Drug ineffective [Unknown]

NARRATIVE: CASE EVENT DATE: 202003
